FAERS Safety Report 10142397 (Version 2)
Quarter: 2014Q2

REPORT INFORMATION
  Report Type: Spontaneous
  Country: CN (occurrence: CN)
  Receive Date: 20140430
  Receipt Date: 20140507
  Transmission Date: 20141212
  Serious: Yes (Hospitalization)
  Sender: FDA-Public Use
  Company Number: CN-009507513-1404CHN013775

PATIENT
  Age: 5 Year
  Sex: Male
  Weight: 17 kg

DRUGS (1)
  1. MONTELUKAST SODIUM [Suspect]
     Indication: BRONCHITIS
     Dosage: 4 MG, QD
     Route: 048
     Dates: start: 20131020, end: 20131022

REACTIONS (1)
  - Mental disorder [Recovered/Resolved]
